FAERS Safety Report 4458253-X (Version None)
Quarter: 2004Q3

REPORT INFORMATION
  Report Type: 
  Country: None (occurrence: None)
  Receive Date: 20040924
  Receipt Date: 20040915
  Transmission Date: 20050211
  Serious: Yes (Life-Threatening, Hospitalization)
  Sender: FDA-Public Use
  Company Number: CN-JNJFOC-20040905207

PATIENT
  Age: 62 Year
  Sex: Female

DRUGS (1)
  1. NIZORAL [Suspect]
     Indication: TINEA PEDIS
     Route: 049

REACTIONS (2)
  - HEPATIC CIRRHOSIS [None]
  - HEPATITIS [None]
